FAERS Safety Report 14520506 (Version 2)
Quarter: 2018Q3

REPORT INFORMATION
  Report Type: Spontaneous
  Country: JP (occurrence: JP)
  Receive Date: 20180212
  Receipt Date: 20180813
  Transmission Date: 20181010
  Serious: Yes (Hospitalization, Other)
  Sender: FDA-Public Use
  Company Number: JP-SA-2018SA033562

PATIENT
  Age: 50 Year
  Sex: Female
  Weight: 51.5 kg

DRUGS (13)
  1. FERROUS CITRATE NA [Concomitant]
     Active Substance: SODIUM FERROUS CITRATE
     Dosage: UNK UNK,UNK
     Route: 048
  2. NEO [Concomitant]
     Dosage: UNK UNK,UNK
     Route: 065
  3. CLARITHROMYCIN. [Concomitant]
     Active Substance: CLARITHROMYCIN
     Dosage: UNK UNK,UNK
     Route: 048
  4. MINOCYCLINE HYDROCHLORIDE. [Concomitant]
     Active Substance: MINOCYCLINE HYDROCHLORIDE
     Dosage: UNK UNK,UNK
     Route: 048
  5. FUROSEMIDE. [Concomitant]
     Active Substance: FUROSEMIDE
     Dosage: UNK UNK,UNK
     Route: 048
  6. ESOMEPRAZOLE MAGNESIUM. [Concomitant]
     Active Substance: ESOMEPRAZOLE MAGNESIUM
     Dosage: UNK UNK,UNK
     Route: 048
  7. CALCIUM LEVOFOLINATE [Concomitant]
     Active Substance: LEVOLEUCOVORIN CALCIUM
     Dosage: 154 MG,QD
     Route: 065
  8. ELPLAT [Suspect]
     Active Substance: OXALIPLATIN
     Dosage: 100.1 MG,QD
     Route: 041
  9. FLUOROURACIL. [Suspect]
     Active Substance: FLUOROURACIL
     Indication: RECTAL CANCER
     Dosage: 924 MG,QD
     Route: 041
  10. FLUOROURACIL. [Suspect]
     Active Substance: FLUOROURACIL
     Dosage: 3696 MG,QOD
     Route: 041
  11. ELPLAT [Suspect]
     Active Substance: OXALIPLATIN
     Indication: RECTAL CANCER
     Dosage: 130.9 MG,QD
     Route: 041
  12. FENTANYL. [Concomitant]
     Active Substance: FENTANYL
     Dosage: UNK UNK,UNK
     Route: 065
  13. CALCIUM LEVOFOLINATE [Concomitant]
     Active Substance: LEVOLEUCOVORIN CALCIUM
     Dosage: 308 MG,QD
     Route: 065

REACTIONS (8)
  - Altered state of consciousness [Recovered/Resolved]
  - Neuropathy peripheral [Unknown]
  - Dehydration [Unknown]
  - Nausea [Recovered/Resolved]
  - Hyperammonaemia [Recovered/Resolved]
  - Thrombocytopenia [Unknown]
  - Dermatitis acneiform [Unknown]
  - Vomiting [Unknown]
